FAERS Safety Report 9262626 (Version 1)
Quarter: 2013Q2

REPORT INFORMATION
  Report Type: Spontaneous
  Country: US (occurrence: US)
  Receive Date: 20130430
  Receipt Date: 20130430
  Transmission Date: 20140414
  Serious: Yes (Death)
  Sender: FDA-Public Use
  Company Number: US-INCYTE CORPORATION-2013IN000840

PATIENT
  Age: 71 Year
  Sex: Male

DRUGS (6)
  1. JAKAFI [Suspect]
     Indication: MYELOFIBROSIS
     Dosage: 15 MG, BID
     Route: 048
  2. EPZICOM [Concomitant]
  3. LASIX [Concomitant]
  4. MEPRON [Concomitant]
  5. SUSTIVA [Concomitant]
  6. ALDACTONE [Concomitant]

REACTIONS (1)
  - Death [Fatal]
